FAERS Safety Report 21920258 (Version 5)
Quarter: 2023Q1

REPORT INFORMATION
  Report Type: Spontaneous
  Country: IT (occurrence: IT)
  Receive Date: 20230127
  Receipt Date: 20230326
  Transmission Date: 20230418
  Serious: Yes (Other)
  Sender: FDA-Public Use
  Company Number: None

PATIENT
  Age: 17 Year
  Sex: Female

DRUGS (3)
  1. LACOSAMIDE [Interacting]
     Active Substance: LACOSAMIDE
     Indication: Idiopathic generalised epilepsy
     Dosage: 400 MILLIGRAM, ONCE DAILY (QD)
  2. VALPROIC ACID [Interacting]
     Active Substance: VALPROIC ACID
     Indication: Petit mal epilepsy
     Dosage: 1000 MILLIGRAM, QD
  3. VALPROIC ACID [Interacting]
     Active Substance: VALPROIC ACID
     Indication: Idiopathic generalised epilepsy

REACTIONS (8)
  - Loss of consciousness [Recovered/Resolved]
  - Condition aggravated [Recovered/Resolved]
  - Toxic encephalopathy [Recovered/Resolved]
  - Toxicity to various agents [Recovered/Resolved]
  - Encephalopathy [Recovered/Resolved]
  - Somnolence [Recovered/Resolved]
  - Tremor [Recovered/Resolved]
  - Drug interaction [Recovered/Resolved]
